FAERS Safety Report 7317561 (Version 6)
Quarter: 2012Q4

REPORT INFORMATION
  Report Type: 
  Country: US (occurrence: US)
  Receive Date: 20100312
  Receipt Date: 20121024
  Transmission Date: 20130627
  Serious: Yes (Hospitalization)
  Sender: FDA-Public Use
  Company Number: US-BAYER-201016010NA

PATIENT
  Age: 24 Year
  Sex: Female
  Weight: 104.31 kg

DRUGS (4)
  1. YASMIN [Suspect]
     Dosage: UNK UNK, QD
     Route: 048
     Dates: start: 200401, end: 200406
  2. YASMIN [Suspect]
     Dosage: UNK
     Dates: start: 20040226, end: 20040514
  3. EXTRA STRENGTH TYLENOL [Concomitant]
     Indication: UNILATERAL LEG PAIN
     Dosage: UNK
  4. ASPIRIN [Concomitant]

REACTIONS (1)
  - Deep vein thrombosis [Recovered/Resolved]
